FAERS Safety Report 10435127 (Version 1)
Quarter: 2014Q3

REPORT INFORMATION
  Report Type: Spontaneous
  Country: GB (occurrence: None)
  Receive Date: 20140707
  Receipt Date: 20140707
  Transmission Date: 20150326
  Serious: Yes (Other)
  Sender: FDA-Public Use
  Company Number: AUR-APL-2014-06141

PATIENT
  Age: 17 Year
  Sex: Female

DRUGS (8)
  1. VALIUM [Suspect]
     Active Substance: DIAZEPAM
     Indication: POST-TRAUMATIC STRESS DISORDER
  2. VALIUM [Suspect]
     Active Substance: DIAZEPAM
     Indication: AUTISM
  3. CITALOPRAM 40MG (CITALOPRAM) UNKNOWN, 40MG [Suspect]
     Active Substance: CITALOPRAM HYDROBROMIDE
     Indication: AUTISM
  4. OLANZAPINE 20MG (OLANZAPINE) UNKNOWN, 20MG [Suspect]
     Active Substance: OLANZAPINE
     Indication: AUTISM
  5. DIAZEPAM (DIAZEPAM) [Suspect]
     Active Substance: DIAZEPAM
     Indication: AUTISM
  6. CITALOPRAM 40MG (CITALOPRAM) UNKNOWN, 40MG [Suspect]
     Active Substance: CITALOPRAM HYDROBROMIDE
     Indication: POST-TRAUMATIC STRESS DISORDER
  7. OLANZAPINE 20MG (OLANZAPINE) UNKNOWN, 20MG [Suspect]
     Active Substance: OLANZAPINE
     Indication: POST-TRAUMATIC STRESS DISORDER
  8. DIAZEPAM (DIAZEPAM) [Suspect]
     Active Substance: DIAZEPAM
     Indication: POST-TRAUMATIC STRESS DISORDER

REACTIONS (4)
  - Anxiety [None]
  - Dependence [None]
  - Depression [None]
  - Psychotic disorder [None]
